FAERS Safety Report 21324416 (Version 1)
Quarter: 2022Q3

REPORT INFORMATION
  Report Type: Spontaneous
  Country: RU (occurrence: RU)
  Receive Date: 20220912
  Receipt Date: 20220912
  Transmission Date: 20221027
  Serious: Yes (Hospitalization, Other)
  Sender: FDA-Public Use
  Company Number: RU-BAYER-2021-205951

PATIENT
  Age: 30 Year
  Sex: Male

DRUGS (2)
  1. RIVAROXABAN [Suspect]
     Active Substance: RIVAROXABAN
     Indication: Product used for unknown indication
     Dosage: UNK
     Route: 048
     Dates: start: 201501, end: 2016
  2. RIVAROXABAN [Suspect]
     Active Substance: RIVAROXABAN
     Dosage: UNK
     Route: 048
     Dates: start: 201812, end: 201903

REACTIONS (3)
  - Malignant melanoma [Unknown]
  - Livedo reticularis [Unknown]
  - Soluble fibrin monomer complex increased [Unknown]

NARRATIVE: CASE EVENT DATE: 20150201
